FAERS Safety Report 7785046-8 (Version None)
Quarter: 2011Q3

REPORT INFORMATION
  Report Type: 
  Country: None (occurrence: None)
  Receive Date: 20110929
  Receipt Date: 20110921
  Transmission Date: 20111222
  Serious: Yes (Other)
  Sender: FDA-Public Use
  Company Number: US-BIOGENIDEC-2011BI031074

PATIENT
  Age: 31 Year
  Sex: Female

DRUGS (2)
  1. LEXAPRO [Concomitant]
  2. TYSABRI [Suspect]
     Indication: MULTIPLE SCLEROSIS
     Route: 042
     Dates: start: 20090227, end: 20110715

REACTIONS (2)
  - PREGNANCY [None]
  - ABORTION SPONTANEOUS [None]
